FAERS Safety Report 9703498 (Version 1)
Quarter: 2013Q4

REPORT INFORMATION
  Report Type: Spontaneous
  Country: US (occurrence: None)
  Receive Date: 20131121
  Receipt Date: 20131121
  Transmission Date: 20140711
  Serious: Yes (Other)
  Sender: FDA-Public Use
  Company Number: None

PATIENT
  Age: 58 Year
  Sex: Female
  Weight: 63.5 kg

DRUGS (1)
  1. VENLAFAXINE HCL ER [Suspect]
     Dosage: 3 PILLS  ONCE DAILY  TAKEN BY MOUTH
     Route: 048
     Dates: start: 20131101, end: 20131119

REACTIONS (2)
  - Drug withdrawal syndrome [None]
  - Product substitution issue [None]
